FAERS Safety Report 7594248-5 (Version None)
Quarter: 2011Q3

REPORT INFORMATION
  Report Type: 
  Country: None (occurrence: None)
  Receive Date: 20110706
  Receipt Date: 20110706
  Transmission Date: 20111222
  Serious: Yes (Life-Threatening)
  Sender: FDA-Public Use
  Company Number: None

PATIENT
  Age: 23 Year
  Sex: Male
  Weight: 86.182 kg

DRUGS (2)
  1. PAXIL [Concomitant]
     Indication: DEPRESSION
     Dosage: 20MG
     Route: 048
     Dates: start: 20110509, end: 20110609
  2. ZYVOX [Suspect]
     Indication: CYSTIC FIBROSIS LUNG
     Dosage: 600 MG
     Route: 048
     Dates: start: 20110514, end: 20110528

REACTIONS (1)
  - SLEEP TERROR [None]
